FAERS Safety Report 22121626 (Version 1)
Quarter: 2023Q1

REPORT INFORMATION
  Report Type: Spontaneous
  Country: US (occurrence: None)
  Receive Date: 20230321
  Receipt Date: 20230321
  Transmission Date: 20230418
  Serious: Yes (Other)
  Sender: FDA-Public Use
  Company Number: None

PATIENT
  Age: 36 Year
  Sex: Female
  Weight: 51.75 kg

DRUGS (5)
  1. ARNUITY ELLIPTA [Suspect]
     Active Substance: FLUTICASONE FUROATE
     Indication: Hypersensitivity
     Dosage: OTHER QUANTITY : 1 INHALATION(S);?FREQUENCY : AT BEDTIME;?
     Route: 055
     Dates: start: 20230319, end: 20230320
  2. ZINC [Concomitant]
     Active Substance: ZINC
  3. vitamin C [Concomitant]
  4. CETIRIZINE HYDROCHLORIDE [Concomitant]
     Active Substance: CETIRIZINE HYDROCHLORIDE
  5. flo-nase [Concomitant]

REACTIONS (5)
  - Tremor [None]
  - Nausea [None]
  - Fatigue [None]
  - Dizziness [None]
  - Chills [None]

NARRATIVE: CASE EVENT DATE: 20230320
